FAERS Safety Report 15801034 (Version 7)
Quarter: 2019Q1

REPORT INFORMATION
  Report Type: Report from Study
  Country: US (occurrence: US)
  Receive Date: 20190109
  Receipt Date: 20190327
  Transmission Date: 20190417
  Serious: Yes (Life-Threatening, Hospitalization, Other)
  Sender: FDA-Public Use
  Company Number: US-TESARO-2018-TSO2580-US

PATIENT
  Age: 79 Year
  Sex: Female
  Weight: 57 kg

DRUGS (2)
  1. ZEJULA [Suspect]
     Active Substance: NIRAPARIB
     Dosage: 200 MG, UNK
     Route: 048
     Dates: start: 20181211, end: 20181223
  2. ZEJULA [Suspect]
     Active Substance: NIRAPARIB
     Indication: OVARIAN CANCER
     Dosage: 100 MG, UNK
     Route: 065
     Dates: start: 20181205

REACTIONS (21)
  - Dehydration [Unknown]
  - Heart rate increased [Recovered/Resolved]
  - Weight decreased [Recovered/Resolved]
  - Atrial fibrillation [Unknown]
  - Fatigue [Not Recovered/Not Resolved]
  - Urinary tract infection [Recovered/Resolved]
  - Inflammation [Not Recovered/Not Resolved]
  - Pancytopenia [Unknown]
  - Anaemia [Recovered/Resolved]
  - Decreased appetite [Recovered/Resolved]
  - Dysgeusia [Unknown]
  - Oral candidiasis [Recovered/Resolved]
  - Stomatitis [Recovered/Resolved]
  - Underdose [Unknown]
  - Blood pressure fluctuation [Recovered/Resolved]
  - Asthenia [Unknown]
  - Pneumonia [Recovered/Resolved]
  - Mucosal inflammation [Recovered/Resolved]
  - Constipation [Not Recovered/Not Resolved]
  - Hypophagia [Recovered/Resolved]
  - Thrombocytopenia [Recovered/Resolved]

NARRATIVE: CASE EVENT DATE: 20181205
